FAERS Safety Report 5561226-7 (Version None)
Quarter: 2007Q4

REPORT INFORMATION
  Report Type: 
  Country: None (occurrence: None)
  Receive Date: 20071215
  Receipt Date: 20071029
  Transmission Date: 20080405
  Serious: No
  Sender: FDA-Public Use
  Company Number: US-AMGEN-KDL250102

PATIENT
  Sex: Female
  Weight: 54.5 kg

DRUGS (10)
  1. ENBREL [Suspect]
     Indication: RHEUMATOID ARTHRITIS
     Route: 058
     Dates: start: 20071001
  2. FOLIC ACID [Concomitant]
  3. METHOTREXATE [Concomitant]
  4. LIMBREL [Concomitant]
  5. HYDROCODONE BITARTRATE [Concomitant]
  6. FISH OIL [Concomitant]
  7. VITAMIN B [Concomitant]
  8. GARLIC [Concomitant]
  9. ELAVIL [Concomitant]
  10. MEPROZINE [Concomitant]

REACTIONS (6)
  - ERYTHEMA [None]
  - FATIGUE [None]
  - INJECTION SITE ERYTHEMA [None]
  - INJECTION SITE PRURITUS [None]
  - INJECTION SITE SWELLING [None]
  - RHEUMATOID ARTHRITIS [None]
